FAERS Safety Report 24402614 (Version 2)
Quarter: 2025Q4

REPORT INFORMATION
  Report Type: Spontaneous
  Country: US (occurrence: US)
  Receive Date: 20241007
  Receipt Date: 20251006
  Transmission Date: 20260117
  Serious: No
  Sender: RANBAXY
  Company Number: US-SUN PHARMACEUTICAL INDUSTRIES LTD-2024R1-433640

PATIENT

DRUGS (1)
  1. CEQUA [Suspect]
     Active Substance: CYCLOSPORINE
     Indication: Dry eye
     Dosage: UNK
     Route: 047
     Dates: start: 202401, end: 202402

REACTIONS (5)
  - Drug ineffective [Unknown]
  - Eye pain [Unknown]
  - Retinal migraine [Unknown]
  - Ocular hyperaemia [Unknown]
  - Therapy cessation [Unknown]
